FAERS Safety Report 6523810-3 (Version None)
Quarter: 2009Q4

REPORT INFORMATION
  Report Type: 
  Country: None (occurrence: None)
  Receive Date: 20091231
  Receipt Date: 20091221
  Transmission Date: 20100525
  Serious: Yes (Other)
  Sender: FDA-Public Use
  Company Number: HU-JNJFOC-20091205461

PATIENT
  Age: 61 Year
  Sex: Male

DRUGS (10)
  1. HALOPERIDOL [Suspect]
     Indication: CATATONIA
     Route: 030
  2. HALOPERIDOL [Suspect]
     Indication: SCHIZOPHRENIA, PARANOID TYPE
     Route: 030
  3. CLONAZEPAM [Suspect]
     Indication: CATATONIA
     Route: 030
  4. CLONAZEPAM [Suspect]
     Indication: SCHIZOPHRENIA, PARANOID TYPE
     Route: 030
  5. CLOZAPINE [Concomitant]
     Route: 048
  6. CLOZAPINE [Concomitant]
     Route: 048
  7. ARIPIPRAZOLE [Concomitant]
     Route: 048
  8. ARIPIPRAZOLE [Concomitant]
     Route: 048
  9. DIVALPROEX SODIUM [Concomitant]
     Route: 048
  10. DIVALPROEX SODIUM [Concomitant]
     Route: 048

REACTIONS (1)
  - CATATONIA [None]
